FAERS Safety Report 9518910 (Version 1)
Quarter: 2013Q3

REPORT INFORMATION
  Report Type: Spontaneous
  Country: US (occurrence: US)
  Receive Date: 20130912
  Receipt Date: 20130912
  Transmission Date: 20140515
  Serious: No
  Sender: FDA-Public Use
  Company Number: US-009507513-1309USA004509

PATIENT
  Age: 56 Year
  Sex: Male

DRUGS (1)
  1. JANUMET [Suspect]
     Indication: BLOOD GLUCOSE ABNORMAL
     Dosage: 1 TABLET, TWICE DAILY
     Route: 048
     Dates: start: 20130829, end: 20130908

REACTIONS (2)
  - Visual impairment [Unknown]
  - Diarrhoea [Unknown]
